FAERS Safety Report 22799706 (Version 3)
Quarter: 2023Q4

REPORT INFORMATION
  Report Type: Spontaneous
  Country: DE (occurrence: DE)
  Receive Date: 20230808
  Receipt Date: 20231107
  Transmission Date: 20240109
  Serious: Yes (Hospitalization, Other)
  Sender: FDA-Public Use
  Company Number: DE-HALEON-DECH2023EME034290

PATIENT
  Sex: Male

DRUGS (15)
  1. ACETAMINOPHEN [Suspect]
     Active Substance: ACETAMINOPHEN
     Indication: Product used for unknown indication
     Dosage: UNK
     Route: 065
  2. POLYETHYLENE GLYCOLS [Suspect]
     Active Substance: POLYETHYLENE GLYCOLS
     Indication: Product used for unknown indication
     Dosage: 1 DOSAGE FORM
     Route: 065
  3. TABRECTA [Suspect]
     Active Substance: CAPMATINIB
     Indication: Non-small cell lung cancer
     Dosage: 150 MILLIGRAM
     Route: 065
     Dates: start: 202206
  4. ELIQUIS [Suspect]
     Active Substance: APIXABAN
     Indication: Thrombosis prophylaxis
     Dosage: 2 DOSAGE FORM, QD
     Route: 065
  5. ELIQUIS [Suspect]
     Active Substance: APIXABAN
     Dosage: 5 MILLIGRAM, BID (2 EVERY 1 DAY)
     Route: 065
     Dates: start: 2023, end: 2023
  6. TORSEMIDE [Suspect]
     Active Substance: TORSEMIDE
     Indication: Product used for unknown indication
     Dosage: UNK, QD
     Route: 065
  7. TORSEMIDE [Suspect]
     Active Substance: TORSEMIDE
     Dosage: UNK, BID
     Route: 065
     Dates: start: 202206
  8. HYDROMORPHONE [Suspect]
     Active Substance: HYDROMORPHONE
     Indication: Back pain
     Dosage: 2 DOSAGE FORM, QD
     Route: 065
  9. HYDROMORPHONE [Suspect]
     Active Substance: HYDROMORPHONE
     Dosage: 4 MILLIGRAM, BID
     Route: 065
  10. FOLIC ACID [Concomitant]
     Active Substance: FOLIC ACID
     Indication: Product used for unknown indication
     Dosage: 1 DOSAGE FORM, QD (1 DF, QD)
     Route: 065
  11. VENORUTON INTENS [Concomitant]
     Indication: Product used for unknown indication
     Dosage: UNK
     Route: 065
  12. ZOMETA [Concomitant]
     Active Substance: ZOLEDRONIC ACID
     Indication: Product used for unknown indication
     Dosage: 1 DOSAGE FORM, MONTHLY
     Route: 065
  13. ZOMETA [Concomitant]
     Active Substance: ZOLEDRONIC ACID
     Dosage: 1 DOSAGE FORM, QD
     Route: 065
  14. CALCIUM [Concomitant]
     Active Substance: CALCIUM
     Indication: Product used for unknown indication
     Dosage: 1 DOSAGE FORM, QD
     Route: 065
  15. VITAMIN D [Concomitant]
     Active Substance: VITAMIN D NOS
     Indication: Product used for unknown indication
     Dosage: UNK
     Route: 065

REACTIONS (33)
  - Chylothorax [Unknown]
  - Thrombosis [Recovered/Resolved]
  - Hospitalisation [Recovered/Resolved]
  - Deafness [Unknown]
  - Gynaecomastia [Unknown]
  - Glomerular filtration rate increased [Unknown]
  - Asthenia [Unknown]
  - Dizziness [Recovered/Resolved]
  - Skin hypertrophy [Unknown]
  - Tinnitus [Unknown]
  - Blood calcium decreased [Unknown]
  - Protein deficiency [Unknown]
  - Weight increased [Recovering/Resolving]
  - Fluid retention [Not Recovered/Not Resolved]
  - Lipase increased [Unknown]
  - Hypoacusis [Unknown]
  - Red blood cell count decreased [Unknown]
  - Blood potassium increased [Unknown]
  - Amylase increased [Unknown]
  - Haemoglobin decreased [Unknown]
  - Asthma [Recovering/Resolving]
  - Back pain [Not Recovered/Not Resolved]
  - Hyperaesthesia [Unknown]
  - Conjunctivitis [Recovering/Resolving]
  - Lymphoedema [Unknown]
  - Blood creatinine increased [Unknown]
  - Blood urea increased [Unknown]
  - Dyspnoea [Not Recovered/Not Resolved]
  - Breath sounds abnormal [Unknown]
  - Pleural effusion [Recovering/Resolving]
  - Fatigue [Unknown]
  - Blood albumin decreased [Unknown]
  - Oedema peripheral [Not Recovered/Not Resolved]

NARRATIVE: CASE EVENT DATE: 20220811
